FAERS Safety Report 8770555 (Version 2)
Quarter: 2012Q4

REPORT INFORMATION
  Report Type: 
  Country: NL (occurrence: NL)
  Receive Date: 20120906
  Receipt Date: 20121122
  Transmission Date: 20130627
  Serious: Yes (Other)
  Sender: FDA-Public Use
  Company Number: PHHY2012NL077056

PATIENT
  Sex: Male
  Weight: 65 kg

DRUGS (5)
  1. ZOMETA [Suspect]
     Indication: METASTASES TO BONE
     Dosage: 4 mg/ 100ml once every 28 days
     Route: 042
     Dates: start: 2010
  2. ZOMETA [Suspect]
     Dosage: 4 mg/ 100ml once every 28 days
     Route: 042
     Dates: start: 20101122
  3. ZOMETA [Suspect]
     Dosage: 4 mg/ 100ml once every 28 days
     Route: 042
     Dates: start: 20120803
  4. ZOMETA [Suspect]
     Dosage: 4 mg/ 100ml once every 28 days
     Route: 042
     Dates: start: 20120904
  5. PARACETAMOL [Concomitant]
     Dosage: When needed

REACTIONS (1)
  - Pneumonia [Recovered/Resolved]
